FAERS Safety Report 8809906 (Version 2)
Quarter: 2013Q2

REPORT INFORMATION
  Report Type: Spontaneous
  Country: BR (occurrence: BR)
  Receive Date: 20120926
  Receipt Date: 20130425
  Transmission Date: 20140414
  Serious: No
  Sender: FDA-Public Use
  Company Number: PHHY2012BR082973

PATIENT
  Sex: Male

DRUGS (1)
  1. GENTEAL GEL [Suspect]
     Dosage: UNK UKN, UNK

REACTIONS (1)
  - Drug administration error [Unknown]
